FAERS Safety Report 11936791 (Version 3)
Quarter: 2016Q3

REPORT INFORMATION
  Report Type: Spontaneous
  Country: US (occurrence: US)
  Receive Date: 20160121
  Receipt Date: 20160720
  Transmission Date: 20161109
  Serious: Yes (Other)
  Sender: FDA-Public Use
  Company Number: US-TEVA-626866USA

PATIENT
  Age: 55 Year
  Sex: Female

DRUGS (4)
  1. ZECUITY [Suspect]
     Active Substance: SUMATRIPTAN SUCCINATE
     Indication: MIGRAINE
     Dosage: SIXTH PATCH USED
     Route: 062
     Dates: start: 20160105, end: 20160105
  2. TREXIMET [Concomitant]
     Active Substance: NAPROXEN SODIUM\SUMATRIPTAN SUCCINATE
     Dosage: AS NEEDED
  3. ZECUITY [Suspect]
     Active Substance: SUMATRIPTAN SUCCINATE
     Indication: MIGRAINE
     Route: 062
     Dates: start: 2015, end: 2015
  4. RELPAX [Concomitant]
     Active Substance: ELETRIPTAN HYDROBROMIDE
     Dosage: AS NEEDED

REACTIONS (8)
  - Application site erythema [Recovered/Resolved]
  - Application site burn [Unknown]
  - Application site vesicles [Recovered/Resolved]
  - Application site swelling [Unknown]
  - Application site rash [Recovered/Resolved]
  - Application site warmth [Recovered/Resolved]
  - Burns second degree [Unknown]
  - Dermatitis contact [Unknown]

NARRATIVE: CASE EVENT DATE: 20160105
